FAERS Safety Report 24416365 (Version 2)
Quarter: 2024Q4

REPORT INFORMATION
  Report Type: Spontaneous
  Country: US (occurrence: US)
  Receive Date: 20241009
  Receipt Date: 20241205
  Transmission Date: 20250115
  Serious: Yes (Other)
  Sender: PFIZER
  Company Number: US-PFIZER INC-202400270004

PATIENT
  Age: 47 Year
  Sex: Male

DRUGS (1)
  1. VELSIPITY [Suspect]
     Active Substance: ETRASIMOD ARGININE
     Dosage: UNK

REACTIONS (7)
  - Rectal haemorrhage [Unknown]
  - Colitis ulcerative [Unknown]
  - Alopecia [Unknown]
  - Feeling jittery [Unknown]
  - Anxiety [Unknown]
  - Condition aggravated [Unknown]
  - Insomnia [Unknown]
